FAERS Safety Report 17324781 (Version 1)
Quarter: 2020Q1

REPORT INFORMATION
  Report Type: Spontaneous
  Country: US (occurrence: US)
  Receive Date: 20200109
  Receipt Date: 20200109
  Transmission Date: 20200409
  Serious: Yes (Hospitalization)
  Sender: FDA-Public Use
  Company Number: None

PATIENT
  Sex: Male
  Weight: 64.8 kg

DRUGS (1)
  1. 5-FLUOROURACIL (5-FU) (19893) [Suspect]
     Active Substance: FLUOROURACIL
     Dates: end: 20151015

REACTIONS (11)
  - Electrocardiogram T wave abnormal [None]
  - Atrial fibrillation [None]
  - Dizziness [None]
  - Hyperkalaemia [None]
  - Intestinal obstruction [None]
  - Hypophagia [None]
  - Asthenia [None]
  - Hypotension [None]
  - Bradycardia [None]
  - Abdominal abscess [None]
  - Palpitations [None]

NARRATIVE: CASE EVENT DATE: 20151221
